FAERS Safety Report 17420527 (Version 1)
Quarter: 2020Q1

REPORT INFORMATION
  Report Type: Report from Study
  Country: None (occurrence: US)
  Receive Date: 20200214
  Receipt Date: 20200214
  Transmission Date: 20200409
  Serious: Yes (Hospitalization)
  Sender: FDA-Public Use
  Company Number: US-ABBVIE-19P-163-2759185-00

PATIENT
  Age: 66 Year
  Sex: Female
  Weight: 74 kg

DRUGS (44)
  1. NORMAL SALINE SOLUTION [Concomitant]
     Indication: DEHYDRATION
     Route: 042
     Dates: start: 20181129, end: 20181129
  2. NORMAL SALINE SOLUTION [Concomitant]
     Route: 042
     Dates: start: 20190123
  3. GLIPIZIDE. [Concomitant]
     Active Substance: GLIPIZIDE
     Indication: DIABETES MELLITUS
     Route: 048
     Dates: start: 20180726
  4. WOMENS MULTIVITAMIN [Concomitant]
     Indication: VITAMIN SUPPLEMENTATION
     Route: 048
     Dates: start: 20180726
  5. PROBIOTIC [Concomitant]
     Active Substance: PROBIOTICS NOS
     Indication: VITAMIN SUPPLEMENTATION
     Route: 048
     Dates: start: 20180726
  6. FLUTICASONE. [Concomitant]
     Active Substance: FLUTICASONE
     Indication: SEASONAL ALLERGY
     Route: 045
     Dates: start: 2016
  7. KYTRIL [Concomitant]
     Active Substance: GRANISETRON HYDROCHLORIDE
     Indication: INFUSION RELATED REACTION
     Route: 042
     Dates: start: 20181003
  8. KYTRIL [Concomitant]
     Active Substance: GRANISETRON HYDROCHLORIDE
     Route: 042
     Dates: start: 20190411, end: 20190411
  9. GA101 [Suspect]
     Active Substance: OBINUTUZUMAB
     Dosage: DAYS 8 AND 15 OF CYCLE 1 AND DAY 1 OF CYCLE 2
     Route: 042
     Dates: start: 20181010, end: 20181031
  10. OZEMPIC [Concomitant]
     Active Substance: SEMAGLUTIDE
     Indication: DIABETES MELLITUS
     Dosage: 0.25-0.50 MG
     Route: 058
     Dates: start: 2011
  11. ALEVE [Concomitant]
     Active Substance: NAPROXEN SODIUM
     Indication: ARTHRALGIA
     Route: 048
     Dates: start: 20181128
  12. VENETOCLAX. [Suspect]
     Active Substance: VENETOCLAX
     Route: 048
     Dates: start: 20190228, end: 20190306
  13. VENETOCLAX. [Suspect]
     Active Substance: VENETOCLAX
     Route: 048
     Dates: start: 20190411, end: 20190420
  14. NORMAL SALINE SOLUTION [Concomitant]
     Indication: PROPHYLAXIS
     Route: 042
     Dates: start: 20181004, end: 20181004
  15. NORMAL SALINE SOLUTION [Concomitant]
     Route: 042
     Dates: start: 20190227, end: 20190228
  16. HYDROCHLOROTHIAZIDE. [Concomitant]
     Active Substance: HYDROCHLOROTHIAZIDE
     Indication: HYPERTENSION
     Route: 048
     Dates: start: 2013
  17. NEUPOGEN [Concomitant]
     Active Substance: FILGRASTIM
     Indication: NEUTROPENIA
     Route: 058
     Dates: start: 20190313, end: 20190314
  18. NORMAL SALINE SOLUTION [Concomitant]
     Indication: DIARRHOEA
     Route: 042
     Dates: start: 20190117, end: 20190122
  19. NORMAL SALINE SOLUTION [Concomitant]
     Indication: PROPHYLAXIS
     Route: 042
     Dates: start: 20190109, end: 20190109
  20. GA101 [Suspect]
     Active Substance: OBINUTUZUMAB
     Dosage: DAY 2 OF CYCLE 1
     Route: 042
     Dates: start: 20181004, end: 20181004
  21. GA101 [Suspect]
     Active Substance: OBINUTUZUMAB
     Dosage: DAY 1 OF EACH CYCLE.
     Route: 042
     Dates: start: 20190509
  22. CITALOPRAM [Concomitant]
     Active Substance: CITALOPRAM HYDROBROMIDE
     Indication: MENOPAUSAL SYMPTOMS
     Route: 048
     Dates: start: 20180726
  23. LIPO-B [Concomitant]
     Indication: SUPPLEMENTATION THERAPY
     Dosage: 1 MG/ML
     Route: 050
     Dates: start: 2017
  24. CIPROFLOXACIN. [Concomitant]
     Active Substance: CIPROFLOXACIN
     Indication: PROPHYLAXIS
     Route: 048
     Dates: start: 20190403
  25. LEVAQUIN [Concomitant]
     Active Substance: LEVOFLOXACIN
     Indication: UPPER RESPIRATORY TRACT INFECTION
     Route: 048
     Dates: start: 20190420, end: 20190427
  26. KYTRIL [Concomitant]
     Active Substance: GRANISETRON HYDROCHLORIDE
     Indication: INFUSION
     Route: 042
     Dates: start: 20190109, end: 20190109
  27. VENETOCLAX. [Suspect]
     Active Substance: VENETOCLAX
     Route: 048
     Dates: start: 20190214, end: 20190220
  28. VENETOCLAX. [Suspect]
     Active Substance: VENETOCLAX
     Route: 048
     Dates: start: 20190221, end: 20190227
  29. VENETOCLAX. [Suspect]
     Active Substance: VENETOCLAX
     Route: 048
     Dates: start: 20190307, end: 20190410
  30. VENETOCLAX. [Suspect]
     Active Substance: VENETOCLAX
     Route: 048
     Dates: start: 20190506
  31. GA101 [Suspect]
     Active Substance: OBINUTUZUMAB
     Dosage: DAY 1 OF EACH CYCLE
     Route: 042
     Dates: start: 20181129, end: 20190411
  32. ROSUVASTATIN. [Concomitant]
     Active Substance: ROSUVASTATIN
     Indication: LIPIDS INCREASED
     Route: 048
     Dates: start: 2013
  33. ARMOUR THYROID [Concomitant]
     Active Substance: THYROID, PORCINE
     Indication: HYPOTHYROIDISM
     Route: 048
     Dates: start: 2015
  34. ZOFRAN [Concomitant]
     Active Substance: ONDANSETRON HYDROCHLORIDE
     Indication: NAUSEA
     Route: 048
     Dates: start: 20190206
  35. NEUPOGEN [Concomitant]
     Active Substance: FILGRASTIM
     Route: 058
     Dates: start: 20190403
  36. KYTRIL [Concomitant]
     Active Substance: GRANISETRON HYDROCHLORIDE
     Indication: PROPHYLAXIS
     Route: 042
     Dates: start: 20181129, end: 20181129
  37. GA101 [Suspect]
     Active Substance: OBINUTUZUMAB
     Indication: CHRONIC LYMPHOCYTIC LEUKAEMIA
     Dosage: DAY 1 OF CYCLE 1
     Route: 042
     Dates: start: 20181003, end: 20181003
  38. NORMAL SALINE SOLUTION [Concomitant]
     Indication: INFUSION RELATED REACTION
     Route: 042
     Dates: start: 20190411, end: 20190411
  39. NORMAL SALINE SOLUTION [Concomitant]
     Indication: PREMEDICATION
     Route: 042
     Dates: start: 20181005, end: 20190116
  40. ESTRADIOL PROGESTERONE [Concomitant]
     Indication: MENOPAUSE
     Dosage: 0.5/100/5 MG
     Route: 048
     Dates: start: 20180726
  41. CYANOCOBALAMIN. [Concomitant]
     Active Substance: CYANOCOBALAMIN
     Indication: VITAMIN SUPPLEMENTATION
     Dosage: 1000 MCG/ML
     Route: 058
     Dates: start: 20180726
  42. COMPAZINE [Concomitant]
     Active Substance: PROCHLORPERAZINE MALEATE
     Indication: NAUSEA
     Route: 048
     Dates: start: 20181003
  43. VENETOCLAX. [Suspect]
     Active Substance: VENETOCLAX
     Indication: CHRONIC LYMPHOCYTIC LEUKAEMIA
     Route: 048
     Dates: start: 20190207, end: 20190213
  44. LOSARTAN. [Concomitant]
     Active Substance: LOSARTAN
     Indication: HYPERTENSION
     Route: 048
     Dates: start: 2013

REACTIONS (1)
  - Pneumonia [Recovered/Resolved]

NARRATIVE: CASE EVENT DATE: 20190422
